FAERS Safety Report 4502826-2 (Version None)
Quarter: 2004Q4

REPORT INFORMATION
  Report Type: 
  Country: None (occurrence: None)
  Receive Date: 20041117
  Receipt Date: 20041029
  Transmission Date: 20050328
  Serious: Yes (Hospitalization)
  Sender: FDA-Public Use
  Company Number: JP-JNJFOC-20040506140

PATIENT
  Sex: Female

DRUGS (10)
  1. RISPERDAL [Suspect]
     Route: 049
  2. RISPERDAL [Suspect]
     Route: 049
  3. RISPERDAL [Suspect]
     Indication: SCHIZOPHRENIA
     Route: 049
  4. BIPERIDEN HYDROCHLORIDE [Concomitant]
     Route: 049
  5. BIPERIDEN HYDROCHLORIDE [Concomitant]
     Route: 049
  6. BROMOCRIPTINE MESYLATE [Concomitant]
     Route: 049
  7. BROTIZOLAM [Concomitant]
     Route: 049
  8. ETHYL LOFLAZEPATE [Concomitant]
     Route: 049
  9. DIAZEPAM [Concomitant]
     Route: 049
  10. CHLORPROMAZINE HYDROCHLORIDE [Concomitant]
     Route: 049

REACTIONS (4)
  - HYPERPROLACTINAEMIA [None]
  - METRORRHAGIA [None]
  - OVARIAN CYST [None]
  - SURGERY [None]
